FAERS Safety Report 7885109-2 (Version None)
Quarter: 2011Q4

REPORT INFORMATION
  Report Type: 
  Country: None (occurrence: None)
  Receive Date: 20111102
  Receipt Date: 20100618
  Transmission Date: 20120403
  Serious: No
  Sender: FDA-Public Use
  Company Number: US-BAYER-201026072NA

PATIENT

DRUGS (1)
  1. AVELOX [Suspect]
     Indication: LOCALISED INFECTION
     Dosage: 400 MG, QD
     Route: 048

REACTIONS (1)
  - LOCALISED INFECTION [None]
